FAERS Safety Report 5213547-5 (Version None)
Quarter: 2007Q1

REPORT INFORMATION
  Report Type: 
  Country: None (occurrence: None)
  Receive Date: 20070119
  Receipt Date: 20070110
  Transmission Date: 20070707
  Serious: Yes (Hospitalization)
  Sender: FDA-Public Use
  Company Number: 2006PK02632

PATIENT
  Age: 877 Month
  Sex: Male
  Weight: 83 kg

DRUGS (14)
  1. CASODEX [Suspect]
     Indication: PROSTATE CANCER
     Route: 048
     Dates: start: 19970101, end: 20061201
  2. ENAHEXAL [Concomitant]
  3. ISOKET RET [Concomitant]
  4. PLANUM [Concomitant]
  5. NITROLINGUAL [Concomitant]
  6. SPIRONOLACTONE [Concomitant]
  7. OSSOFORTIN [Concomitant]
  8. BISOPROLOL FUMARATE [Concomitant]
  9. SIMVASTATIN [Concomitant]
  10. ALLO [Concomitant]
  11. MARCUMAR [Concomitant]
  12. PANTOZOL [Concomitant]
  13. INSUMAN RAPID [Concomitant]
  14. INSUMAN BASAL [Concomitant]

REACTIONS (1)
  - DEEP VEIN THROMBOSIS [None]
